FAERS Safety Report 16984066 (Version 1)
Quarter: 2019Q4

REPORT INFORMATION
  Report Type: Spontaneous
  Country: BR (occurrence: BR)
  Receive Date: 20191101
  Receipt Date: 20191101
  Transmission Date: 20200122
  Serious: Yes (Other)
  Sender: FDA-Public Use
  Company Number: PHHY2019BR216466

PATIENT
  Age: 56 Year
  Sex: Female

DRUGS (4)
  1. QUETIAPINE FUMARATE. [Suspect]
     Active Substance: QUETIAPINE FUMARATE
     Indication: ANXIETY
  2. MIOSAN [Concomitant]
     Active Substance: CYCLOBENZAPRINE
     Indication: FIBROMYALGIA
     Dosage: UNK
     Route: 065
  3. QUETIAPINE FUMARATE. [Suspect]
     Active Substance: QUETIAPINE FUMARATE
     Indication: DEPRESSION
     Dosage: UNK UNK, QN
     Route: 065
  4. GLICAZIDA [Concomitant]
     Active Substance: GLICLAZIDE
     Indication: DIABETES MELLITUS
     Dosage: UNK
     Route: 065

REACTIONS (12)
  - Stress [Unknown]
  - Insomnia [Unknown]
  - Fear [Unknown]
  - Depression [Unknown]
  - Psychomotor hyperactivity [Unknown]
  - Drug withdrawal syndrome [Unknown]
  - Nervousness [Unknown]
  - Asthenia [Unknown]
  - Anxiety [Unknown]
  - Therapeutic product effect incomplete [Unknown]
  - Agitation [Unknown]
  - Emotional disorder [Unknown]

NARRATIVE: CASE EVENT DATE: 20190829
